FAERS Safety Report 6901852-3 (Version None)
Quarter: 2010Q3

REPORT INFORMATION
  Report Type: 
  Country: None (occurrence: None)
  Receive Date: 20100803
  Receipt Date: 20080329
  Transmission Date: 20110219
  Serious: No
  Sender: FDA-Public Use
  Company Number: US-PFIZER INC-2008010455

PATIENT
  Age: 65 Year
  Sex: Female
  Weight: 113.4 kg

DRUGS (18)
  1. LYRICA [Suspect]
     Indication: NEUROPATHY PERIPHERAL
     Route: 048
  2. LANTUS [Concomitant]
  3. NOVOLOG [Concomitant]
  4. ATENOLOL [Concomitant]
  5. SIMVASTATIN [Concomitant]
  6. COLACE [Concomitant]
  7. NORVASC [Concomitant]
  8. ACETYLSALICYLIC ACID SRT [Concomitant]
  9. VITACAL [Concomitant]
  10. IBUPROFEN [Concomitant]
  11. ALL OTHER THERAPEUTIC PRODUCTS [Concomitant]
  12. WELLBUTRIN XL [Concomitant]
  13. MYCELEX [Concomitant]
     Route: 061
  14. ZETIA [Concomitant]
  15. LISINOPRIL [Concomitant]
  16. CLARITIN [Concomitant]
  17. LASIX [Concomitant]
  18. METHYLIN - SLOW RELEASE [Concomitant]

REACTIONS (2)
  - DIPLOPIA [None]
  - VISION BLURRED [None]
